FAERS Safety Report 20126052 (Version 1)
Quarter: 2021Q4

REPORT INFORMATION
  Report Type: Report from Study
  Country: DE (occurrence: DE)
  Receive Date: 20211129
  Receipt Date: 20211129
  Transmission Date: 20220303
  Serious: Yes (Other)
  Sender: FDA-Public Use
  Company Number: DE-MYLANLABS-2021M1087800

PATIENT
  Age: 2201 Day

DRUGS (2)
  1. AMIODARONE [Suspect]
     Active Substance: AMIODARONE
     Indication: Product used for unknown indication
     Dosage: UNK
     Route: 065
  2. IOMEPROL [Concomitant]
     Active Substance: IOMEPROL
     Indication: Diagnostic procedure
     Dosage: UNK, IOMEPROL [IMERON (R) 400 M] 816.5 MG/ML (CORRESPONDING TO 400MG OF IODINE) AQUEOUS SOLUTION
     Route: 065

REACTIONS (2)
  - Hypothyroidism [Recovered/Resolved]
  - Off label use [Unknown]
